FAERS Safety Report 22758861 (Version 3)
Quarter: 2023Q4

REPORT INFORMATION
  Report Type: Report from Study
  Country: US (occurrence: US)
  Receive Date: 20230728
  Receipt Date: 20231011
  Transmission Date: 20240110
  Serious: Yes (Other)
  Sender: FDA-Public Use
  Company Number: US-ABBVIE-5343609

PATIENT
  Age: 64 Year
  Sex: Female
  Weight: 91 kg

DRUGS (25)
  1. SKYRIZI [Suspect]
     Active Substance: RISANKIZUMAB-RZAA
     Indication: Psoriasis
     Dosage: FORM STRENGTH: 150 MG
     Route: 058
     Dates: start: 20220802, end: 202212
  2. SKYRIZI [Suspect]
     Active Substance: RISANKIZUMAB-RZAA
     Indication: Psoriasis
     Dosage: FORM STRENGTH: 150MG
     Route: 058
     Dates: start: 20220801, end: 20220802
  3. SKYRIZI [Suspect]
     Active Substance: RISANKIZUMAB-RZAA
     Dosage: FORM STRENGTH: 150 MG  STARTING AT 4 WEEKS AFTER INITIATION DOSE
     Route: 058
     Dates: start: 202302, end: 20230802
  4. ALBUTEROL [Concomitant]
     Active Substance: ALBUTEROL
     Indication: Asthma
     Dosage: 90MCG/ACTUATION INHALER INHALE 2 PUFFS INTO LUNGS EVERY 4 TO 6 HOURS AS NEEDED FOR WHEEZING
  5. NYSTATIN [Concomitant]
     Active Substance: NYSTATIN
     Indication: Candida infection
     Dosage: APPLY TOPICALLY 3 TIMES A DAILY AS NEEDED FOR RASH ON CHEST
  6. HYDROCHLOROTHIAZIDE [Concomitant]
     Active Substance: HYDROCHLOROTHIAZIDE
     Indication: Hypertension
     Dosage: 12.5MG  TAKE 1 TABLET BY MOUTH DAILY
  7. CHOLECALCIFEROL [Concomitant]
     Active Substance: CHOLECALCIFEROL
     Indication: Vitamin supplementation
     Dosage: 25MCG(1000UNIT)
  8. DESONIDE [Concomitant]
     Active Substance: DESONIDE
     Indication: Dry skin
     Dosage: 0.05% CREAM APPLY TOPICALLY DAILY
  9. FLUOCINONIDE [Concomitant]
     Active Substance: FLUOCINONIDE
     Indication: Psoriasis
     Route: 061
  10. MESALAMINE [Concomitant]
     Active Substance: MESALAMINE
     Indication: Colitis ulcerative
     Dosage: 400MG CDTI TAKE 3 CAPSULE (1200MG TOTAL) BY MOUTH DAILY
  11. TAZAROTENE [Concomitant]
     Active Substance: TAZAROTENE
     Indication: Neurodermatitis
     Dosage: 0.1% CREAM  APPLY RIGHT KNEE ONCE NIGHTLY DAYS SUPPLY 30
  12. FLUTICASONE PROPIONATE [Concomitant]
     Active Substance: FLUTICASONE PROPIONATE
     Indication: Hypersensitivity
     Dosage: 50 MCG/ACTUATION NASAL SPRAY USE ONE SPRAY IN EACH NOSTRIL EVERY DAY NEEDED FOR RHINITIS
  13. TENORMIN [Concomitant]
     Active Substance: ATENOLOL
     Indication: Hypertension
     Dosage: 1 TABLET?FORM STRENGTH: 100 MG TAKE ONE TABLET BY MOUTH DAILY
  14. LEVOTHYROXINE [Concomitant]
     Active Substance: LEVOTHYROXINE
     Indication: Hypothyroidism
     Dosage: 100MCG TAKE ONE TABLET BY MOUTH DAILY
  15. KETOCONAZOLE [Concomitant]
     Active Substance: KETOCONAZOLE
     Indication: Intertrigo
     Dosage: 2% CREAM APPLY TO RASH ON CHEST TWICE DAILY UNTIL RESOLVED DAYS SUPPLY 30
  16. HYOSCYAMINE [Concomitant]
     Active Substance: HYOSCYAMINE
     Indication: Colitis ulcerative
     Dosage: 0.125MG TABLET AS NEEDED
  17. CELEXA [Concomitant]
     Active Substance: CITALOPRAM HYDROBROMIDE
     Indication: Anxiety
  18. TRIAMCINOLONE ACETONIDE [Concomitant]
     Active Substance: TRIAMCINOLONE ACETONIDE
     Indication: Product used for unknown indication
     Dosage: 0.1% CREAM
  19. TACROLIMUS [Concomitant]
     Active Substance: TACROLIMUS
     Indication: Product used for unknown indication
     Dosage: 0.1% OINTMENT
  20. MELOXICAM [Concomitant]
     Active Substance: MELOXICAM
     Indication: Product used for unknown indication
     Dosage: 15MG TAKE ONE TABLET (15MG TOTAL) BY MOUTH DAILY
  21. TRAMADOL [Concomitant]
     Active Substance: TRAMADOL\TRAMADOL HYDROCHLORIDE
     Indication: Product used for unknown indication
     Dosage: 50MG  TAKE 1 TABLET EVERY 8HRS  AS NEED FOR PAIN
  22. HALOBETASOL [Concomitant]
     Active Substance: HALOBETASOL
     Indication: Product used for unknown indication
     Dosage: 0.05% CREAM
  23. FLUOCINONIDE [Concomitant]
     Active Substance: FLUOCINONIDE
     Indication: Psoriasis
     Dosage: 0.05% CREAM APPLY TO AFFECTED AREA TWO TIMES A DAY FOR TWO WEEKS THEN TWICE PER WEEK FOR TWO WEEK...
  24. IMIPRAMINE [Concomitant]
     Active Substance: IMIPRAMINE
     Indication: Product used for unknown indication
     Dosage: 10MG
  25. NYSTATIN [Concomitant]
     Active Substance: NYSTATIN
     Indication: Vulvovaginal mycotic infection
     Dosage: APPLY TOPICALLY 2 TIMES DAILY AS NEEDED RASH ON VAGINAL AREA UP TO 0.25G DAILY

REACTIONS (10)
  - Rotator cuff syndrome [Recovering/Resolving]
  - Pain in extremity [Recovering/Resolving]
  - Exposure to SARS-CoV-2 [Recovered/Resolved]
  - Pain in extremity [Recovered/Resolved]
  - Back pain [Recovered/Resolved]
  - Muscular weakness [Recovering/Resolving]
  - Muscular weakness [Not Recovered/Not Resolved]
  - Blood glucose increased [Unknown]
  - Aspartate aminotransferase increased [Unknown]
  - Blood urea increased [Unknown]

NARRATIVE: CASE EVENT DATE: 20221001
